FAERS Safety Report 22857025 (Version 3)
Quarter: 2024Q1

REPORT INFORMATION
  Report Type: Spontaneous
  Country: US (occurrence: US)
  Receive Date: 20230823
  Receipt Date: 20240219
  Transmission Date: 20240410
  Serious: No
  Sender: FDA-Public Use
  Company Number: US-Stemline Therapeutics, Inc.-2023ST001947

PATIENT
  Age: 64 Year
  Sex: Female
  Weight: 83.082 kg

DRUGS (4)
  1. ORSERDU [Suspect]
     Active Substance: ELACESTRANT
     Indication: Breast cancer metastatic
     Route: 048
     Dates: start: 20230615
  2. ORSERDU [Suspect]
     Active Substance: ELACESTRANT
     Route: 048
     Dates: start: 20230615
  3. MS CONTIN [Concomitant]
     Active Substance: MORPHINE SULFATE
     Indication: Product used for unknown indication
     Dosage: 15MG/DAY OR 7.5MG X2 /DAY
     Route: 048
     Dates: start: 201707
  4. LEVOTHYROXINE [Concomitant]
     Active Substance: LEVOTHYROXINE\LEVOTHYROXINE SODIUM
     Indication: Product used for unknown indication
     Dosage: 450MCG/DAY
     Route: 048
     Dates: start: 2015

REACTIONS (9)
  - Tinea pedis [Recovered/Resolved]
  - Dermatitis [Unknown]
  - Oral pain [Recovered/Resolved]
  - Fungal infection [Unknown]
  - Neoplasm malignant [Unknown]
  - Mouth ulceration [Recovered/Resolved]
  - Musculoskeletal pain [Not Recovered/Not Resolved]
  - Nausea [Unknown]
  - Pruritus [Unknown]

NARRATIVE: CASE EVENT DATE: 20230711
